FAERS Safety Report 23138067 (Version 1)
Quarter: 2023Q4

REPORT INFORMATION
  Report Type: Spontaneous
  Country: CN (occurrence: CN)
  Receive Date: 20231102
  Receipt Date: 20231102
  Transmission Date: 20240110
  Serious: Yes (Hospitalization)
  Sender: FDA-Public Use
  Company Number: CN-JNJFOC-20231067250

PATIENT
  Age: 4 Year
  Sex: Female
  Weight: 18.5 kg

DRUGS (1)
  1. CHILDRENS MOTRIN [Suspect]
     Active Substance: IBUPROFEN
     Indication: Pyrexia
     Route: 048
     Dates: start: 20231014, end: 20231014

REACTIONS (3)
  - Incorrect dose administered [Recovering/Resolving]
  - Rash [Recovering/Resolving]
  - Pruritus [Recovered/Resolved]

NARRATIVE: CASE EVENT DATE: 20231014
